FAERS Safety Report 5796328-3 (Version None)
Quarter: 2008Q2

REPORT INFORMATION
  Report Type: 
  Country: None (occurrence: None)
  Receive Date: 20080627
  Receipt Date: 20080617
  Transmission Date: 20081010
  Serious: Yes (Other)
  Sender: FDA-Public Use
  Company Number: 231148J07USA

PATIENT
  Age: 42 Year
  Sex: Female
  Weight: 169.6453 kg

DRUGS (1)
  1. REBIF [Suspect]
     Indication: MULTIPLE SCLEROSIS
     Dosage: 44 MCG, 1 IN 2 DAYS, SUBCUTANEOUS
     Route: 058
     Dates: start: 20070910, end: 20071101

REACTIONS (2)
  - DIALYSIS [None]
  - RENAL FAILURE CHRONIC [None]
